FAERS Safety Report 22352135 (Version 1)
Quarter: 2023Q2

REPORT INFORMATION
  Report Type: Spontaneous
  Country: US (occurrence: US)
  Receive Date: 20230522
  Receipt Date: 20230522
  Transmission Date: 20230721
  Serious: No
  Sender: FDA-Public Use
  Company Number: US-PFIZER INC-PV202300089845

PATIENT
  Age: 85 Year
  Sex: Female
  Weight: 77.9 kg

DRUGS (5)
  1. AROMASIN [Suspect]
     Active Substance: EXEMESTANE
     Indication: Hormone receptor positive breast cancer
     Dosage: 25 MG, 1X/DAY
     Route: 048
     Dates: start: 20221107
  2. AROMASIN [Suspect]
     Active Substance: EXEMESTANE
     Indication: Intraductal proliferative breast lesion
  3. AROMASIN [Suspect]
     Active Substance: EXEMESTANE
     Indication: Breast mass
  4. TAMOXIFEN [Concomitant]
     Active Substance: TAMOXIFEN
     Dosage: 20 MG, DAILY
     Dates: start: 20221015
  5. PROLIA [Concomitant]
     Active Substance: DENOSUMAB
     Dosage: UNK

REACTIONS (5)
  - Osteopenia [Unknown]
  - Nipple pain [Unknown]
  - Poor quality sleep [Unknown]
  - Somnolence [Unknown]
  - Arthralgia [Unknown]
